FAERS Safety Report 17777834 (Version 2)
Quarter: 2020Q3

REPORT INFORMATION
  Report Type: Report from Study
  Country: US (occurrence: US)
  Receive Date: 20200513
  Receipt Date: 20200708
  Transmission Date: 20201102
  Serious: No
  Sender: FDA-Public Use
  Company Number: NVSC2020US129745

PATIENT
  Sex: Female

DRUGS (1)
  1. COSENTYX [Suspect]
     Active Substance: SECUKINUMAB
     Indication: PSORIASIS
     Dosage: 300 MG (ONCE WEEKLY FOR 5 WEEKS (LOADING) THEN ONCE EVERY 4 WEEKS (MAINTAINANCE)
     Route: 058
     Dates: start: 20200318

REACTIONS (2)
  - Therapeutic response unexpected [Unknown]
  - Gluten sensitivity [Unknown]
